FAERS Safety Report 7036705-6 (Version None)
Quarter: 2010Q4

REPORT INFORMATION
  Report Type: 
  Country: None (occurrence: None)
  Receive Date: 20101011
  Receipt Date: 20101004
  Transmission Date: 20110411
  Serious: No
  Sender: FDA-Public Use
  Company Number: US-BIOGENIDEC-2010BI034248

PATIENT
  Age: 23 Year
  Sex: Female

DRUGS (2)
  1. AVONEX [Suspect]
     Indication: MULTIPLE SCLEROSIS
     Route: 030
     Dates: start: 20100721, end: 20100801
  2. AVONEX [Suspect]
     Route: 030
     Dates: start: 20100801

REACTIONS (2)
  - ANGINA PECTORIS [None]
  - YELLOW SKIN [None]
